FAERS Safety Report 7670915-X (Version None)
Quarter: 2011Q3

REPORT INFORMATION
  Report Type: 
  Country: None (occurrence: None)
  Receive Date: 20110805
  Receipt Date: 20110805
  Transmission Date: 20111222
  Serious: Yes (Hospitalization)
  Sender: FDA-Public Use
  Company Number: None

PATIENT
  Sex: Male
  Weight: 65 kg

DRUGS (4)
  1. CYCLOPHOSPHAMIDE [Suspect]
  2. DOXIL [Suspect]
  3. PREDNISONE [Suspect]
  4. RITUXIMAB (MOAB C2B8 .ANTI C20,CHIMERIC) 675 MG [Suspect]

REACTIONS (8)
  - POSTOPERATIVE ADHESION [None]
  - ABDOMINAL ABSCESS [None]
  - DIFFUSE LARGE B-CELL LYMPHOMA STAGE IV [None]
  - SMALL INTESTINAL OBSTRUCTION [None]
  - HYPOKALAEMIA [None]
  - NEOPLASM PROGRESSION [None]
  - FEBRILE NEUTROPENIA [None]
  - BACTERIAL TEST POSITIVE [None]
